FAERS Safety Report 14549852 (Version 4)
Quarter: 2021Q4

REPORT INFORMATION
  Report Type: Report from Study
  Country: US (occurrence: US)
  Receive Date: 20180219
  Receipt Date: 20211203
  Transmission Date: 20220303
  Serious: Yes (Death, Hospitalization, Other)
  Sender: FDA-Public Use
  Company Number: US-ACADIA PHARMACEUTICALS INC.-ACA-2017-006209

PATIENT
  Age: 84 Year
  Sex: Male

DRUGS (2)
  1. NUPLAZID [Suspect]
     Active Substance: PIMAVANSERIN TARTRATE
     Indication: Product used for unknown indication
     Dosage: 34 MG, QD
     Route: 048
     Dates: start: 20170915
  2. NUPLAZID [Suspect]
     Active Substance: PIMAVANSERIN TARTRATE
     Indication: Parkinson^s disease
     Dosage: 34 MILLIGRAM, QD
     Route: 048

REACTIONS (9)
  - Death [Fatal]
  - Atrial fibrillation [Unknown]
  - Hallucination [Unknown]
  - Delusion [Unknown]
  - Muscle spasms [Unknown]
  - Delusion [Unknown]
  - Weight decreased [Unknown]
  - Product dispensing error [Unknown]
  - Drug interaction [Unknown]

NARRATIVE: CASE EVENT DATE: 20211117
